FAERS Safety Report 15842864 (Version 2)
Quarter: 2019Q1

REPORT INFORMATION
  Report Type: Spontaneous
  Country: US (occurrence: US)
  Receive Date: 20190118
  Receipt Date: 20190128
  Transmission Date: 20190417
  Serious: No
  Sender: FDA-Public Use
  Company Number: US-009507513-1901USA002519

PATIENT
  Age: 67 Year
  Sex: Male

DRUGS (1)
  1. PROVENTIL [Suspect]
     Active Substance: ALBUTEROL
     Indication: LUNG DISORDER
     Dosage: 2 INHALATIONS 4 TIMES A DAY
     Route: 055
     Dates: start: 2015

REACTIONS (3)
  - Underdose [Unknown]
  - Dyspnoea [Not Recovered/Not Resolved]
  - Product quality issue [Unknown]

NARRATIVE: CASE EVENT DATE: 20190107
